FAERS Safety Report 8001249-1 (Version None)
Quarter: 2011Q4

REPORT INFORMATION
  Report Type: 
  Country: None (occurrence: None)
  Receive Date: 20111222
  Receipt Date: 20111212
  Transmission Date: 20120403
  Serious: Yes (Hospitalization, Other)
  Sender: FDA-Public Use
  Company Number: US-ELI_LILLY_AND_COMPANY-US201109005548

PATIENT
  Sex: Male
  Weight: 92.971 kg

DRUGS (25)
  1. ASPIRIN [Concomitant]
  2. ZOCOR [Concomitant]
  3. MELATONIN [Concomitant]
  4. LISINOPRIL [Concomitant]
  5. COENZYME Q10 [Concomitant]
  6. VITAMIN D [Concomitant]
  7. NIASPAN [Concomitant]
  8. XANAX [Concomitant]
  9. EFFIENT [Suspect]
     Indication: STENT PLACEMENT
     Dosage: 10 MG, QD
     Route: 048
     Dates: start: 20100301, end: 20110801
  10. VITAMIN C [Concomitant]
  11. HYOSCYAMINE [Concomitant]
  12. PARAFON [Concomitant]
  13. CENTRUM [Concomitant]
  14. IRON [Concomitant]
  15. CARAFATE [Concomitant]
  16. TRICOR [Concomitant]
  17. LOVAZA [Concomitant]
  18. VOLTAREN                                /SCH/ [Concomitant]
  19. MAGNESIUM [Concomitant]
  20. LORATADINE [Concomitant]
  21. FIORICET [Concomitant]
  22. RANEXA [Concomitant]
  23. MUSE [Concomitant]
  24. BIOTIN [Concomitant]
  25. PROTONIX [Concomitant]

REACTIONS (2)
  - HEAD INJURY [None]
  - SUBDURAL HAEMATOMA [None]
